FAERS Safety Report 5179404-8 (Version None)
Quarter: 2006Q4

REPORT INFORMATION
  Report Type: 
  Country: None (occurrence: None)
  Receive Date: 20061219
  Receipt Date: 20061208
  Transmission Date: 20070319
  Serious: Yes (Hospitalization)
  Sender: FDA-Public Use
  Company Number: FR-ROCHE-474296

PATIENT
  Age: 71 Year
  Sex: Male

DRUGS (13)
  1. RIVOTRIL [Suspect]
     Indication: DRUG USE FOR UNKNOWN INDICATION
     Route: 048
     Dates: start: 20060826, end: 20061026
  2. LAROXYL [Suspect]
     Indication: DRUG USE FOR UNKNOWN INDICATION
     Route: 048
     Dates: start: 20060826, end: 20061026
  3. DAFALGAN [Suspect]
     Indication: DRUG USE FOR UNKNOWN INDICATION
     Route: 048
     Dates: start: 20060826
  4. DAFALGAN [Suspect]
     Route: 048
     Dates: start: 20061010, end: 20061010
  5. DAFALGAN [Suspect]
     Route: 048
     Dates: end: 20061026
  6. ACETAMINOPHEN W/ PROPOXYPHENE HCL [Suspect]
     Indication: DRUG USE FOR UNKNOWN INDICATION
     Route: 048
     Dates: start: 20060826, end: 20061026
  7. NEXIUM [Concomitant]
  8. PLAVIX [Concomitant]
  9. CARDENSIEL [Concomitant]
  10. TRIATEC [Concomitant]
  11. FONZYLANE [Concomitant]
  12. THIAMINE HCL [Concomitant]
  13. VITAMIN B6 [Concomitant]

REACTIONS (1)
  - HEPATITIS [None]
